FAERS Safety Report 8038001-7 (Version None)
Quarter: 2012Q1

REPORT INFORMATION
  Report Type: 
  Country: None (occurrence: None)
  Receive Date: 20120111
  Receipt Date: 20120105
  Transmission Date: 20120608
  Serious: Yes (Other)
  Sender: FDA-Public Use
  Company Number: US-PFIZER INC-2012003917

PATIENT
  Sex: Female
  Weight: 59.864 kg

DRUGS (2)
  1. VAGIFEM [Concomitant]
     Indication: MENOPAUSE
     Dosage: UNK
  2. CHANTIX [Suspect]
     Indication: SMOKING CESSATION THERAPY
     Dosage: 0.5 MG, 1X/DAY
     Route: 048
     Dates: start: 20111231

REACTIONS (2)
  - SWOLLEN TONGUE [None]
  - SENSATION OF FOREIGN BODY [None]
